FAERS Safety Report 8487931-0 (Version None)
Quarter: 2012Q2

REPORT INFORMATION
  Report Type: 
  Country: None (occurrence: None)
  Receive Date: 20120627
  Receipt Date: 20120618
  Transmission Date: 20120825
  Serious: Yes (Hospitalization)
  Sender: FDA-Public Use
  Company Number: 2012060101

PATIENT
  Sex: Female

DRUGS (1)
  1. SOMA [Suspect]

REACTIONS (1)
  - HOSPITALISATION [None]
